FAERS Safety Report 7217488-3 (Version None)
Quarter: 2011Q1

REPORT INFORMATION
  Report Type: 
  Country: None (occurrence: None)
  Receive Date: 20110110
  Receipt Date: 20110105
  Transmission Date: 20110831
  Serious: No
  Sender: FDA-Public Use
  Company Number: US-TEVA-262360USA

PATIENT
  Sex: Male

DRUGS (1)
  1. ALBUTEROL SULFATE AUTOHALER [Suspect]
     Route: 055

REACTIONS (2)
  - ORAL DISCOMFORT [None]
  - OROPHARYNGEAL PAIN [None]
